FAERS Safety Report 6976717-1 (Version None)
Quarter: 2010Q3

REPORT INFORMATION
  Report Type: 
  Country: None (occurrence: None)
  Receive Date: 20100910
  Receipt Date: 20100827
  Transmission Date: 20110219
  Serious: Yes (Hospitalization)
  Sender: FDA-Public Use
  Company Number: US-ELI_LILLY_AND_COMPANY-US201008001860

PATIENT
  Sex: Female

DRUGS (13)
  1. FORTEO [Suspect]
     Indication: OSTEOPOROSIS
     Dosage: 20 UG, DAILY (1/D)
  2. INSULIN [Concomitant]
  3. LOSARTAN POTASSIUM [Concomitant]
  4. WARFARIN [Concomitant]
  5. MAGNESIUM CHLORIDE [Concomitant]
  6. CHLORACON [Concomitant]
  7. FUROSEMIDE [Concomitant]
  8. CARVEDILOL [Concomitant]
  9. COLCHICINE [Concomitant]
  10. METOCLOPRAMIDE [Concomitant]
  11. GABAPENTINE [Concomitant]
  12. SPIRIVA [Concomitant]
  13. VITAMIN D [Concomitant]

REACTIONS (7)
  - BACK PAIN [None]
  - BRONCHITIS [None]
  - DECREASED APPETITE [None]
  - NEPHROLITHIASIS [None]
  - PAIN [None]
  - RENAL PAIN [None]
  - WEIGHT DECREASED [None]
